FAERS Safety Report 17151450 (Version 1)
Quarter: 2019Q4

REPORT INFORMATION
  Report Type: Spontaneous
  Country: US (occurrence: US)
  Receive Date: 20191213
  Receipt Date: 20191213
  Transmission Date: 20200122
  Serious: No
  Sender: FDA-Public Use
  Company Number: US-SUNOVION-2019SUN005307

PATIENT
  Sex: Female
  Weight: 61.22 kg

DRUGS (1)
  1. LATUDA [Suspect]
     Active Substance: LURASIDONE HYDROCHLORIDE
     Indication: BIPOLAR DISORDER
     Dosage: 40 MG
     Route: 048
     Dates: start: 201908

REACTIONS (4)
  - Depressed mood [Not Recovered/Not Resolved]
  - Decreased activity [Not Recovered/Not Resolved]
  - Crying [Not Recovered/Not Resolved]
  - Therapy cessation [Unknown]
